FAERS Safety Report 16277058 (Version 1)
Quarter: 2019Q2

REPORT INFORMATION
  Report Type: Spontaneous
  Country: US (occurrence: US)
  Receive Date: 20190506
  Receipt Date: 20190506
  Transmission Date: 20190711
  Serious: Yes (Hospitalization, Other)
  Sender: FDA-Public Use
  Company Number: US-JNJFOC-20190501434

PATIENT
  Sex: Female
  Weight: 78.02 kg

DRUGS (8)
  1. REMICADE [Suspect]
     Active Substance: INFLIXIMAB
     Indication: PRODUCT USED FOR UNKNOWN INDICATION
     Route: 042
  2. HUMIRA [Suspect]
     Active Substance: ADALIMUMAB
     Indication: CROHN^S DISEASE
     Route: 058
     Dates: start: 2015
  3. PREDNISONE. [Suspect]
     Active Substance: PREDNISONE
     Indication: PERICARDITIS
     Route: 048
     Dates: start: 2004, end: 2007
  4. HUMIRA [Suspect]
     Active Substance: ADALIMUMAB
     Indication: CROHN^S DISEASE
     Route: 058
     Dates: start: 2007, end: 2008
  5. PREDNISONE. [Suspect]
     Active Substance: PREDNISONE
     Indication: PERICARDITIS
     Route: 048
     Dates: start: 20180928
  6. METHOTREXATE. [Suspect]
     Active Substance: METHOTREXATE
     Indication: PRODUCT USED FOR UNKNOWN INDICATION
     Route: 065
  7. HUMIRA [Suspect]
     Active Substance: ADALIMUMAB
     Indication: COLITIS ULCERATIVE
     Route: 058
     Dates: start: 2007, end: 2008
  8. HUMIRA [Suspect]
     Active Substance: ADALIMUMAB
     Indication: COLITIS ULCERATIVE
     Route: 058
     Dates: start: 2015

REACTIONS (14)
  - Fall [Unknown]
  - Spinal fracture [Unknown]
  - Skin discolouration [Unknown]
  - Atrial fibrillation [Recovered/Resolved]
  - Pulmonary oedema [Unknown]
  - Arthritis [Unknown]
  - Cardiac failure congestive [Recovered/Resolved]
  - Scoliosis [Unknown]
  - Joint injury [Unknown]
  - Respiratory disorder [Unknown]
  - Nodule [Unknown]
  - Peripheral coldness [Unknown]
  - Surgical failure [Unknown]
  - Skin ulcer [Unknown]

NARRATIVE: CASE EVENT DATE: 2007
